FAERS Safety Report 9621173 (Version 1)
Quarter: 2013Q4

REPORT INFORMATION
  Report Type: Spontaneous
  Country: US (occurrence: None)
  Receive Date: 20131011
  Receipt Date: 20131011
  Transmission Date: 20140711
  Serious: Yes (Hospitalization)
  Sender: FDA-Public Use
  Company Number: None

PATIENT
  Age: 75 Year
  Sex: Male
  Weight: 105.2 kg

DRUGS (1)
  1. RITUXIMAB [Suspect]
     Indication: NON-HODGKIN^S LYMPHOMA
     Route: 042
     Dates: start: 20121101, end: 20121101

REACTIONS (6)
  - Nausea [None]
  - Diarrhoea [None]
  - Flushing [None]
  - Wheezing [None]
  - Dyspnoea [None]
  - Anaphylactic reaction [None]
